FAERS Safety Report 24783194 (Version 2)
Quarter: 2025Q1

REPORT INFORMATION
  Report Type: Spontaneous
  Country: IL (occurrence: IL)
  Receive Date: 20241227
  Receipt Date: 20250111
  Transmission Date: 20250409
  Serious: Yes (Death, Hospitalization)
  Sender: AMGEN
  Company Number: IL-AMGEN-ISRSP2024253675

PATIENT

DRUGS (1)
  1. EVENITY [Suspect]
     Active Substance: ROMOSOZUMAB-AQQG
     Indication: Osteoporosis postmenopausal
     Route: 065

REACTIONS (6)
  - Death [Fatal]
  - Cerebrovascular accident [Unknown]
  - Acute myocardial infarction [Unknown]
  - Coronary angioplasty [Unknown]
  - Coronary artery bypass [Unknown]
  - Illness [Unknown]
